FAERS Safety Report 5724846-2 (Version None)
Quarter: 2008Q2

REPORT INFORMATION
  Report Type: 
  Country: None (occurrence: None)
  Receive Date: 20080501
  Receipt Date: 20080417
  Transmission Date: 20081010
  Serious: Yes (Hospitalization, Other)
  Sender: FDA-Public Use
  Company Number: CA-BAYER-200711957GDS

PATIENT
  Age: 53 Year
  Sex: Female

DRUGS (2)
  1. ASPIRIN [Suspect]
     Indication: TOOTHACHE
     Dosage: TOTAL DAILY DOSE: 3000 MG  UNIT DOSE: 500 MG
     Route: 065
     Dates: start: 20051112, end: 20051114
  2. ASPIRIN [Suspect]
     Dosage: TOTAL DAILY DOSE: 4500 MG  UNIT DOSE: 500 MG
     Route: 065
     Dates: start: 20051114, end: 20051116

REACTIONS (3)
  - FEELING ABNORMAL [None]
  - THERAPEUTIC AGENT TOXICITY [None]
  - TINNITUS [None]
